FAERS Safety Report 5420599-6 (Version None)
Quarter: 2007Q3

REPORT INFORMATION
  Report Type: 
  Country: None (occurrence: None)
  Receive Date: 20070816
  Receipt Date: 20070720
  Transmission Date: 20080115
  Serious: Yes (Death, Hospitalization)
  Sender: FDA-Public Use
  Company Number: 6036224

PATIENT
  Age: 76 Year
  Sex: Male

DRUGS (9)
  1. FLUCONAZOLE [Suspect]
     Indication: GRAFT INFECTION
     Dosage: 150 MG (150 MG, 1 IN 1 D)
  2. ATORVASTATIN CALCIUM [Suspect]
     Indication: HYPERLIPIDAEMIA
     Dosage: 40 MG (40 MG, 1 IN 1 D)
  3. ESOMEPRAZOLE(ESOMEPRAZOLE) [Concomitant]
  4. FUSIDIC ACID [Concomitant]
  5. DOXYCYCLINE [Concomitant]
  6. PREDNISOLONE [Concomitant]
  7. WARFARIN SODIUM [Concomitant]
  8. DIGOXIN [Concomitant]
  9. BISOPROLOL FUMARATE [Concomitant]

REACTIONS (12)
  - ANURIA [None]
  - CARDIOMEGALY [None]
  - CONTINUOUS HAEMODIAFILTRATION [None]
  - DRUG INTERACTION [None]
  - DYSPNOEA [None]
  - HAEMOGLOBIN DECREASED [None]
  - HYPOTENSION [None]
  - INTERNATIONAL NORMALISED RATIO INCREASED [None]
  - MULTI-ORGAN FAILURE [None]
  - NO THERAPEUTIC RESPONSE [None]
  - PULMONARY CONGESTION [None]
  - RHABDOMYOLYSIS [None]
